FAERS Safety Report 13613013 (Version 1)
Quarter: 2017Q2

REPORT INFORMATION
  Report Type: Spontaneous
  Country: TW (occurrence: TW)
  Receive Date: 20170605
  Receipt Date: 20170605
  Transmission Date: 20170830
  Serious: Yes (Other)
  Sender: FDA-Public Use
  Company Number: TW-MYLANLABS-2017M1033610

PATIENT

DRUGS (5)
  1. ETOPOSIDE. [Suspect]
     Active Substance: ETOPOSIDE
     Indication: NASOPHARYNGEAL CANCER
     Dosage: 50 MG ONCE DAILY FOR 7 DAYS EVERY FOUR WEEKS
     Route: 048
     Dates: start: 201208
  2. CYCLOPHOSPHAMIDE. [Suspect]
     Active Substance: CYCLOPHOSPHAMIDE
     Indication: NASOPHARYNGEAL CANCER
     Route: 065
     Dates: start: 201203
  3. FLUOROURACIL. [Suspect]
     Active Substance: FLUOROURACIL
     Indication: NASOPHARYNGEAL CANCER
     Dosage: 900 MG/M2, 24 H INFUSION ON DAY 1 TO DAY 3, EVERY 3 WEEKS
     Route: 050
     Dates: start: 201103, end: 201105
  4. CARBOPLATIN. [Suspect]
     Active Substance: CARBOPLATIN
     Indication: NASOPHARYNGEAL CANCER
     Dosage: AUC 5 ON DAY 1 EVERY THREE WEEKS
     Route: 065
     Dates: start: 201103, end: 201105
  5. TEGAFUR W/URACIL [Suspect]
     Active Substance: TEGAFUR\URACIL
     Indication: NASOPHARYNGEAL CANCER
     Dosage: 100/224MG TWICE DAILY
     Route: 065
     Dates: start: 201203

REACTIONS (3)
  - Fatigue [Unknown]
  - Neutropenia [Recovering/Resolving]
  - Stomatitis [Unknown]
